FAERS Safety Report 9491126 (Version 1)
Quarter: 2013Q3

REPORT INFORMATION
  Report Type: Spontaneous
  Country: RU (occurrence: RU)
  Receive Date: 20130830
  Receipt Date: 20130830
  Transmission Date: 20140515
  Serious: Yes (Death)
  Sender: FDA-Public Use
  Company Number: RU-SANOFI-AVENTIS-2013SA084208

PATIENT
  Sex: 0

DRUGS (1)
  1. PLAVIX [Suspect]
     Indication: ACUTE CORONARY SYNDROME
     Route: 048

REACTIONS (2)
  - Coronary artery restenosis [Fatal]
  - Suspected counterfeit product [Fatal]
